FAERS Safety Report 5447403-4 (Version None)
Quarter: 2007Q3

REPORT INFORMATION
  Report Type: 
  Country: None (occurrence: None)
  Receive Date: 20070905
  Receipt Date: 20070905
  Transmission Date: 20080115
  Serious: Yes (Life-Threatening)
  Sender: FDA-Public Use
  Company Number: None

PATIENT
  Age: 51 Year
  Sex: Female
  Weight: 65.7716 kg

DRUGS (1)
  1. CLINDAMYCIN HCL [Suspect]
     Indication: TOOTH INFECTION
     Dosage: BID  PO
     Route: 048
     Dates: start: 20061203, end: 20061213

REACTIONS (3)
  - ABDOMINAL DISTENSION [None]
  - CLOSTRIDIUM DIFFICILE COLITIS [None]
  - MUSCLE SPASMS [None]
